FAERS Safety Report 8339202-0 (Version None)
Quarter: 2012Q2

REPORT INFORMATION
  Report Type: 
  Country: None (occurrence: None)
  Receive Date: 20120502
  Receipt Date: 20120417
  Transmission Date: 20120825
  Serious: Yes (Hospitalization)
  Sender: FDA-Public Use
  Company Number: FK201201185

PATIENT
  Age: 64 Year
  Sex: Male

DRUGS (7)
  1. FOLIC ACID [Concomitant]
  2. SERETIDE DISKUS (GALENIC/FLUTICASONE/SALMETEROL) [Concomitant]
  3. ERBITUX [Concomitant]
  4. SPIRIVA [Concomitant]
  5. BERODUAL (DUOVENT) [Concomitant]
  6. FLUOROURACIL [Suspect]
     Indication: COLORECTAL CANCER
     Dosage: 400 MG/M2, 1 IN 2 WK, INTRAVENOUS
     Route: 042
     Dates: start: 20100901, end: 20101120
  7. IRINOTECAN HCL [Suspect]
     Indication: COLORECTAL CANCER
     Dosage: 180 MG/M2, 1 IN 2 WK, INTRAVENOUS
     Route: 042
     Dates: start: 20100901, end: 20101118

REACTIONS (2)
  - ABDOMINAL ABSCESS [None]
  - GENERAL PHYSICAL HEALTH DETERIORATION [None]
